FAERS Safety Report 10637817 (Version 1)
Quarter: 2014Q4

REPORT INFORMATION
  Report Type: Spontaneous
  Country: LB (occurrence: LB)
  Receive Date: 20141208
  Receipt Date: 20141208
  Transmission Date: 20150529
  Serious: Yes (Hospitalization)
  Sender: FDA-Public Use
  Company Number: LB-MYLANLABS-2014M1013010

PATIENT

DRUGS (1)
  1. SUNITINIB [Suspect]
     Active Substance: SUNITINIB
     Dosage: 50 MG, QD
     Route: 065

REACTIONS (2)
  - Hypothyroidism [Recovered/Resolved]
  - Thrombotic thrombocytopenic purpura [Recovered/Resolved]
